FAERS Safety Report 11871174 (Version 2)
Quarter: 2016Q4

REPORT INFORMATION
  Report Type: Spontaneous
  Country: US (occurrence: US)
  Receive Date: 20151228
  Receipt Date: 20161021
  Transmission Date: 20170206
  Serious: Yes (Disabling, Other)
  Sender: FDA-Public Use
  Company Number: US-BAYER-2015-489642

PATIENT

DRUGS (2)
  1. LEVAQUIN [Suspect]
     Active Substance: LEVOFLOXACIN
     Dosage: UNK
  2. AVELOX [Suspect]
     Active Substance: MOXIFLOXACIN HYDROCHLORIDE
     Indication: CHRONIC SINUSITIS
     Dosage: UNK

REACTIONS (9)
  - Musculoskeletal pain [Recovering/Resolving]
  - Impaired quality of life [None]
  - Disability [None]
  - Tendonitis [None]
  - Rotator cuff syndrome [None]
  - Pain [None]
  - Life expectancy shortened [None]
  - Neuropathy peripheral [None]
  - Tendon disorder [None]
